FAERS Safety Report 9727874 (Version 1)
Quarter: 2013Q4

REPORT INFORMATION
  Report Type: Spontaneous
  Country: US (occurrence: US)
  Receive Date: 20131204
  Receipt Date: 20131204
  Transmission Date: 20140711
  Serious: No
  Sender: FDA-Public Use
  Company Number: 2008BI002465

PATIENT
  Age: 49 Year
  Sex: Female

DRUGS (3)
  1. AVONEX [Suspect]
     Indication: MULTIPLE SCLEROSIS
     Dates: start: 19991214
  2. AVONEX [Suspect]
     Indication: MULTIPLE SCLEROSIS
     Route: 030
     Dates: start: 20000101
  3. FOSAMAX [Concomitant]
     Indication: OSTEOPOROSIS PROPHYLAXIS

REACTIONS (8)
  - Blood calcium increased [Not Recovered/Not Resolved]
  - Urine calcium increased [Unknown]
  - Fall [Recovered/Resolved]
  - Ankle fracture [Recovered/Resolved]
  - Foot fracture [Recovered/Resolved]
  - Influenza like illness [Recovered/Resolved]
  - Body temperature increased [Recovered/Resolved]
  - Fatigue [Recovered/Resolved]
